FAERS Safety Report 6956549-0 (Version None)
Quarter: 2010Q3

REPORT INFORMATION
  Report Type: 
  Country: None (occurrence: None)
  Receive Date: 20100830
  Receipt Date: 20100222
  Transmission Date: 20110219
  Serious: Yes (Other)
  Sender: FDA-Public Use
  Company Number: US-AMGEN-KDC397597

PATIENT
  Age: 46 Year

DRUGS (6)
  1. NEUPOGEN [Suspect]
     Indication: PRODUCT USED FOR UNKNOWN INDICATION
  2. DOCETAXEL [Suspect]
  3. BEVACIZUMAB [Suspect]
  4. TRASTUZUMAB [Suspect]
  5. EPIRUBICIN [Suspect]
  6. CYCLOPHOSPHAMIDE [Suspect]

REACTIONS (1)
  - BACK PAIN [None]
